FAERS Safety Report 9276933 (Version 2)
Quarter: 2013Q3

REPORT INFORMATION
  Report Type: Spontaneous
  Country: IL (occurrence: IL)
  Receive Date: 20130507
  Receipt Date: 20130711
  Transmission Date: 20140515
  Serious: Yes (Hospitalization, Other)
  Sender: FDA-Public Use
  Company Number: IL-PFIZER INC-2013137717

PATIENT
  Sex: Male

DRUGS (1)
  1. TORISEL [Suspect]
     Dosage: UNK
     Dates: start: 20120830

REACTIONS (6)
  - Lung infection [Recovered/Resolved]
  - Chills [Recovered/Resolved]
  - Dyspnoea [Recovered/Resolved]
  - Erysipelas [Recovered/Resolved]
  - Angle closure glaucoma [Recovered/Resolved]
  - Convulsion [Recovered/Resolved]
